FAERS Safety Report 9713651 (Version 1)
Quarter: 2013Q4

REPORT INFORMATION
  Report Type: Spontaneous
  Country: US (occurrence: None)
  Receive Date: 20131122
  Receipt Date: 20131122
  Transmission Date: 20140711
  Serious: Yes (Other)
  Sender: FDA-Public Use
  Company Number: PERC20130159

PATIENT
  Age: 38 Year
  Sex: Female

DRUGS (1)
  1. PERCOCET [Suspect]
     Indication: DRUG ABUSE
     Dosage: 250/16,  250MG,  50 TABLETS IN 2 DAYS,  INSUFFLATION

REACTIONS (7)
  - Wrong technique in drug usage process [None]
  - Drug abuse [None]
  - Nausea [None]
  - Pharyngitis [None]
  - Toxicity to various agents [None]
  - Drug level above therapeutic [None]
  - Incorrect route of drug administration [None]
